FAERS Safety Report 9918411 (Version 1)
Quarter: 2014Q1

REPORT INFORMATION
  Report Type: Spontaneous
  Country: US (occurrence: US)
  Receive Date: 20140224
  Receipt Date: 20140224
  Transmission Date: 20141002
  Serious: No
  Sender: FDA-Public Use
  Company Number: US-BIOGENIDEC-2014BI016502

PATIENT
  Sex: Female

DRUGS (4)
  1. AVONEX [Suspect]
     Indication: MULTIPLE SCLEROSIS
     Route: 030
  2. AVONEX [Suspect]
     Indication: MULTIPLE SCLEROSIS
     Route: 030
     Dates: start: 20000701
  3. AVONEX [Suspect]
     Indication: MULTIPLE SCLEROSIS
     Route: 030
     Dates: start: 20000801, end: 20090311
  4. AVONEX [Suspect]
     Indication: MULTIPLE SCLEROSIS
     Route: 030
     Dates: start: 20120201

REACTIONS (3)
  - Inappropriate schedule of drug administration [Unknown]
  - Muscular weakness [Not Recovered/Not Resolved]
  - Muscle spasms [Not Recovered/Not Resolved]
